FAERS Safety Report 18010607 (Version 1)
Quarter: 2020Q3

REPORT INFORMATION
  Report Type: Spontaneous
  Country: DE (occurrence: DE)
  Receive Date: 20200710
  Receipt Date: 20200710
  Transmission Date: 20201103
  Serious: Yes (Other)
  Sender: FDA-Public Use
  Company Number: DE-US-PROVELL PHARMACEUTICALS LLC-E2B_90078554

PATIENT
  Sex: Female

DRUGS (5)
  1. EUTHYROX [Suspect]
     Active Substance: LEVOTHYROXINE SODIUM
     Indication: POST PROCEDURAL HYPOTHYROIDISM
     Dosage: EUTHYROX 150 MCG
  2. EUTHYROX [Interacting]
     Active Substance: LEVOTHYROXINE SODIUM
     Dosage: DOSE REDUCED
  3. EUTHYROX [Interacting]
     Active Substance: LEVOTHYROXINE SODIUM
     Dosage: DOSE REDUCED
  4. EUTHYROX [Interacting]
     Active Substance: LEVOTHYROXINE SODIUM
  5. EUTHYROX [Interacting]
     Active Substance: LEVOTHYROXINE SODIUM
     Dosage: DOSE REDUCED

REACTIONS (20)
  - Hyperthyroidism [Not Recovered/Not Resolved]
  - Hypotension [Unknown]
  - Palpitations [Unknown]
  - Drug interaction [Unknown]
  - Restlessness [Unknown]
  - Headache [Unknown]
  - Alopecia [Recovering/Resolving]
  - Fatigue [Unknown]
  - Dizziness [Unknown]
  - Dyspnoea [Unknown]
  - Hyperhidrosis [Unknown]
  - Tremor [Unknown]
  - Hypothyroidism [Unknown]
  - Chest discomfort [Unknown]
  - Heart rate increased [Unknown]
  - Abdominal discomfort [Unknown]
  - Drug intolerance [Unknown]
  - Product supply issue [Unknown]
  - Blindness transient [Unknown]
  - Constipation [Unknown]

NARRATIVE: CASE EVENT DATE: 2019
